FAERS Safety Report 7135845-0 (Version None)
Quarter: 2010Q4

REPORT INFORMATION
  Report Type: 
  Country: None (occurrence: None)
  Receive Date: 20101203
  Receipt Date: 20101122
  Transmission Date: 20110411
  Serious: Yes (Hospitalization, Other)
  Sender: FDA-Public Use
  Company Number: BR-GENENTECH-310223

PATIENT
  Sex: Female
  Weight: 62 kg

DRUGS (5)
  1. MABTHERA [Suspect]
     Indication: NON-HODGKIN'S LYMPHOMA
     Dosage: 600 MG, UNK
     Route: 042
     Dates: start: 20101007
  2. CYCLOPHOSPHAMIDE [Concomitant]
     Indication: NON-HODGKIN'S LYMPHOMA
     Dosage: UNK
     Dates: start: 20101007
  3. DOXORUBICIN [Concomitant]
     Indication: NON-HODGKIN'S LYMPHOMA
  4. PREDNISONE [Concomitant]
     Indication: NON-HODGKIN'S LYMPHOMA
  5. VINCRISTINE [Concomitant]
     Indication: NON-HODGKIN'S LYMPHOMA

REACTIONS (2)
  - EMBOLISM ARTERIAL [None]
  - THROMBOCYTOSIS [None]
